FAERS Safety Report 16823136 (Version 1)
Quarter: 2019Q3

REPORT INFORMATION
  Report Type: Spontaneous
  Country: US (occurrence: US)
  Receive Date: 20190918
  Receipt Date: 20190918
  Transmission Date: 20191005
  Serious: Yes (Other)
  Sender: FDA-Public Use
  Company Number: US-009507513-1909USA004563

PATIENT
  Age: 22 Year
  Sex: Female

DRUGS (1)
  1. NEXPLANON [Suspect]
     Active Substance: ETONOGESTREL
     Dosage: 1 DOSAGE FORM; LEFT ARM
     Dates: start: 201703, end: 20190909

REACTIONS (7)
  - Menstruation irregular [Unknown]
  - Presyncope [Unknown]
  - Complication associated with device [Recovered/Resolved]
  - Complication of device removal [Recovered/Resolved]
  - Seizure [Unknown]
  - Device deployment issue [Recovered/Resolved]
  - Post procedural swelling [Unknown]

NARRATIVE: CASE EVENT DATE: 201703
